FAERS Safety Report 6307750-0 (Version None)
Quarter: 2009Q3

REPORT INFORMATION
  Report Type: 
  Country: None (occurrence: None)
  Receive Date: 20090812
  Receipt Date: 20090812
  Transmission Date: 20100115
  Serious: Yes (Life-Threatening, Hospitalization)
  Sender: FDA-Public Use
  Company Number: None

PATIENT
  Sex: Male
  Weight: 91.7 kg

DRUGS (1)
  1. CARBAMAZEPINE XR 200 MG TARO [Suspect]
     Indication: EPILEPSY
     Dosage: 200 MG  1AM AND 2 QHS PO
     Route: 048
     Dates: start: 20090720, end: 20090810

REACTIONS (2)
  - CONVULSION [None]
  - PRODUCT SUBSTITUTION ISSUE [None]
